FAERS Safety Report 17608891 (Version 1)
Quarter: 2020Q2

REPORT INFORMATION
  Report Type: Spontaneous
  Country: US (occurrence: US)
  Receive Date: 20200401
  Receipt Date: 20200401
  Transmission Date: 20200713
  Serious: No
  Sender: FDA-Public Use
  Company Number: US-UCBSA-2016018777

PATIENT
  Age: 55 Year
  Sex: Female

DRUGS (5)
  1. REMODULIN [Suspect]
     Active Substance: TREPROSTINIL
     Indication: PULMONARY HYPERTENSION
     Dosage: 50 NG/ KG
     Route: 058
     Dates: start: 20110324
  2. ADCIRCA [Concomitant]
     Active Substance: TADALAFIL
     Indication: PRODUCT USED FOR UNKNOWN INDICATION
     Dosage: UNK
  3. AZITHROMYCIN ANHYDROUS. [Suspect]
     Active Substance: AZITHROMYCIN ANHYDROUS
     Indication: INFECTION
     Dosage: UNK
  4. METOLAZONE. [Suspect]
     Active Substance: METOLAZONE
     Indication: FLUID RETENTION
     Dosage: UNK
     Dates: start: 201604
  5. METFORMIN [Suspect]
     Active Substance: METFORMIN HYDROCHLORIDE
     Indication: DIABETES MELLITUS
     Dosage: 500 MG, 2X/DAY (BID)
     Dates: start: 20160330

REACTIONS (7)
  - Blood glucose increased [Unknown]
  - Fluid retention [Unknown]
  - Conjunctivitis [Unknown]
  - Infection [Unknown]
  - Pain in extremity [Unknown]
  - Peripheral swelling [Unknown]
  - Diarrhoea [Unknown]

NARRATIVE: CASE EVENT DATE: 201604
